FAERS Safety Report 9007075 (Version 2)
Quarter: 2013Q1

REPORT INFORMATION
  Report Type: Report from Study
  Country: NL (occurrence: NL)
  Receive Date: 20130110
  Receipt Date: 20130122
  Transmission Date: 20140127
  Serious: Yes (Hospitalization)
  Sender: FDA-Public Use
  Company Number: NL-ROCHE-1175058

PATIENT
  Age: 62 Year
  Sex: Female
  Weight: 107 kg

DRUGS (18)
  1. METFORMIN [Concomitant]
     Route: 065
  2. REQUIP [Concomitant]
     Route: 065
  3. PERTUZUMAB [Suspect]
     Indication: BREAST CANCER
     Dosage: DATE OF LAST DOSE PRIOR TO SAE: 17/DEC/2012
     Route: 042
     Dates: start: 20121127, end: 20130108
  4. TRASTUZUMAB [Suspect]
     Indication: BREAST CANCER
     Dosage: LOADING DOSE, CYCLE 1
     Route: 042
     Dates: start: 20121127
  5. TRASTUZUMAB [Suspect]
     Dosage: DATE OF LAST DOSE PRIOR TO SAE: 18/DEC/2012, MAINTENANCE DOSE: 6 MG/KG
     Route: 042
     Dates: end: 20130108
  6. PACLITAXEL [Suspect]
     Indication: BREAST CANCER
     Dosage: DATE OF LAST DOSE PRIOR TO FIRST EPIDODE: 17/DEC/2012, SECOND EPISODE: 31/DEC/2012
     Route: 042
     Dates: start: 20121127, end: 20130108
  7. ACETYLSALICYLIC ACID [Concomitant]
     Route: 065
  8. ACETYLSALICYLIC ACID [Concomitant]
     Route: 065
  9. BISOPROLOL [Concomitant]
     Route: 065
  10. HYDROCHLOROTHIAZIDE [Concomitant]
     Route: 065
  11. AMILORIDE [Concomitant]
     Route: 065
  12. OMEPRAZOL [Concomitant]
     Route: 065
  13. TEMAZEPAM [Concomitant]
     Route: 065
  14. PARACETAMOL [Concomitant]
     Dosage: DOSE REPORTED: MAX 4 G
     Route: 065
  15. SPIRIVA [Concomitant]
     Route: 065
  16. SERETIDE [Concomitant]
     Route: 065
  17. SIMVASTATINE [Concomitant]
     Route: 065
  18. METOCLOPRAMIDE [Concomitant]
     Route: 065

REACTIONS (3)
  - Skin infection [Recovering/Resolving]
  - Weight decreased [Recovering/Resolving]
  - Pyrexia [Recovered/Resolved]
